FAERS Safety Report 5518216-X (Version None)
Quarter: 2007Q4

REPORT INFORMATION
  Report Type: 
  Country: None (occurrence: None)
  Receive Date: 20071115
  Receipt Date: 20071031
  Transmission Date: 20080405
  Serious: Yes (Life-Threatening, Hospitalization)
  Sender: FDA-Public Use
  Company Number: PL-GENENTECH-245842

PATIENT
  Sex: Female
  Weight: 69 kg

DRUGS (12)
  1. BEVACIZUMAB [Suspect]
     Indication: BREAST CANCER METASTATIC
     Dosage: 1065 MG, Q3W
     Route: 042
     Dates: start: 20070705, end: 20070920
  2. PACLITAXEL [Suspect]
     Indication: BREAST CANCER METASTATIC
     Dosage: 304.5 MG, Q3W
     Route: 042
     Dates: start: 20070705, end: 20070920
  3. LOSARTAN POTASSIUM [Concomitant]
     Indication: DRUG USE FOR UNKNOWN INDICATION
     Dates: start: 20060415
  4. DILTIAZEM [Concomitant]
     Indication: DRUG USE FOR UNKNOWN INDICATION
     Dates: start: 20060415
  5. SALMETEROL [Concomitant]
     Indication: DRUG USE FOR UNKNOWN INDICATION
     Dates: start: 20070515
  6. FLUTICASONE PROPIONATE [Concomitant]
     Indication: DRUG USE FOR UNKNOWN INDICATION
  7. HIDROXIZINA [Concomitant]
     Indication: DRUG USE FOR UNKNOWN INDICATION
  8. DIOSMIN [Concomitant]
     Indication: DRUG USE FOR UNKNOWN INDICATION
     Dates: start: 20070706
  9. MORPHINE [Concomitant]
     Indication: DRUG USE FOR UNKNOWN INDICATION
     Dates: start: 20070709
  10. MIANSERIN [Concomitant]
     Indication: DRUG USE FOR UNKNOWN INDICATION
  11. ETHAMSYLATE [Concomitant]
     Indication: DRUG USE FOR UNKNOWN INDICATION
     Dates: start: 20070727
  12. TRANXENE [Concomitant]
     Indication: DRUG USE FOR UNKNOWN INDICATION
     Dates: start: 20070727

REACTIONS (3)
  - ANAEMIA [None]
  - HAEMOPTYSIS [None]
  - SEPSIS [None]
